FAERS Safety Report 6810656-1 (Version None)
Quarter: 2010Q2

REPORT INFORMATION
  Report Type: 
  Country: None (occurrence: None)
  Receive Date: 20100629
  Receipt Date: 20100629
  Transmission Date: 20101027
  Serious: Yes (Life-Threatening)
  Sender: FDA-Public Use
  Company Number: None

PATIENT
  Age: 41 Year
  Sex: Female
  Weight: 68.0396 kg

DRUGS (2)
  1. YAZ [Suspect]
     Indication: MENORRHAGIA
     Dosage: 3-0.02MG DAILY PO
     Route: 048
     Dates: start: 20090812, end: 20100309
  2. YAZ [Suspect]
     Indication: PREMENSTRUAL SYNDROME
     Dosage: 3-0.02MG DAILY PO
     Route: 048
     Dates: start: 20090812, end: 20100309

REACTIONS (4)
  - CHEST PAIN [None]
  - DYSPNOEA [None]
  - PULMONARY EMBOLISM [None]
  - THROMBOSIS [None]
